FAERS Safety Report 21574309 (Version 1)
Quarter: 2022Q4

REPORT INFORMATION
  Report Type: Report from Study
  Country: US (occurrence: US)
  Receive Date: 20221109
  Receipt Date: 20221109
  Transmission Date: 20230112
  Serious: No
  Sender: FDA-Public Use
  Company Number: US-INCYTE CORPORATION-2022IN010205

PATIENT

DRUGS (4)
  1. JAKAFI [Suspect]
     Active Substance: RUXOLITINIB
     Indication: Polycythaemia vera
     Dosage: 5 MILLIGRAM (TAKES ONE, 5 MG JAKAFI TABLET IN THE MORNING AND TWO, 5 MG TABLETS OF JAKAFI IN THE EVE
     Route: 048
  2. HYDREA [Suspect]
     Active Substance: HYDROXYUREA
     Dosage: UNK (THREE PILLS A WEEK)
     Route: 065
  3. PEPCID [Concomitant]
     Active Substance: FAMOTIDINE
     Indication: Gastrooesophageal reflux disease
     Route: 065
  4. VAGIFEM [Concomitant]
     Active Substance: ESTRADIOL
     Indication: Vulvovaginal dryness
     Route: 065

REACTIONS (9)
  - Drug intolerance [Unknown]
  - Pain [Unknown]
  - Asthenia [Unknown]
  - Fatigue [Unknown]
  - Platelet count abnormal [Unknown]
  - Dizziness [Unknown]
  - Flatulence [Unknown]
  - Dyspnoea [Unknown]
  - Nausea [Recovering/Resolving]
